FAERS Safety Report 5719025-9 (Version None)
Quarter: 2008Q2

REPORT INFORMATION
  Report Type: 
  Country: None (occurrence: None)
  Receive Date: 20080423
  Receipt Date: 20080410
  Transmission Date: 20081010
  Serious: Yes (Hospitalization)
  Sender: FDA-Public Use
  Company Number: 2008AL002251

PATIENT
  Age: 85 Year
  Sex: Male

DRUGS (10)
  1. HYDROCORTISONE CREAM USP, 2.65% (ALPHARMA) (HYDROCORTISONE CREAM USP, [Suspect]
     Dosage: 30 MG;QD;PO
     Route: 048
  2. LEVOTHYROXINE SODIUM [Concomitant]
  3. PREVISCAN [Concomitant]
  4. IXEL [Concomitant]
  5. FORLAX [Concomitant]
  6. ZOLPIDEM [Concomitant]
  7. AERIUS [Concomitant]
  8. ALPRAZOLAM [Concomitant]
  9. ESOMEPRAZOLE [Concomitant]
  10. ACETAMINOPHEN [Concomitant]

REACTIONS (7)
  - ANAEMIA [None]
  - CHEST PAIN [None]
  - GAIT DISTURBANCE [None]
  - HAEMATOMA [None]
  - INTERNATIONAL NORMALISED RATIO INCREASED [None]
  - PAIN IN EXTREMITY [None]
  - SUBCUTANEOUS HAEMATOMA [None]
